FAERS Safety Report 6893164-1 (Version None)
Quarter: 2010Q3

REPORT INFORMATION
  Report Type: 
  Country: None (occurrence: None)
  Receive Date: 20100731
  Receipt Date: 20090616
  Transmission Date: 20110219
  Serious: No
  Sender: FDA-Public Use
  Company Number: US-PFIZER INC-2009199946

PATIENT
  Sex: Male
  Weight: 92.971 kg

DRUGS (1)
  1. NEURONTIN [Suspect]
     Indication: TREMOR
     Dosage: 100 MG, 1X/DAY

REACTIONS (2)
  - DIZZINESS [None]
  - RESTLESSNESS [None]
